FAERS Safety Report 23505750 (Version 2)
Quarter: 2024Q3

REPORT INFORMATION
  Report Type: Spontaneous
  Country: US (occurrence: US)
  Receive Date: 20240209
  Receipt Date: 20240827
  Transmission Date: 20241017
  Serious: Yes (Other)
  Sender: BRISTOL MYERS SQUIBB
  Company Number: US-BRISTOL-MYERS SQUIBB COMPANY-2024-020963

PATIENT
  Age: 76 Year
  Sex: Male

DRUGS (1)
  1. POMALYST [Suspect]
     Active Substance: POMALIDOMIDE
     Indication: Plasmacytoma
     Route: 048

REACTIONS (4)
  - Joint swelling [Unknown]
  - Peripheral swelling [Unknown]
  - Off label use [Unknown]
  - Drug ineffective for unapproved indication [Unknown]
